FAERS Safety Report 19081946 (Version 2)
Quarter: 2021Q2

REPORT INFORMATION
  Report Type: Spontaneous
  Country: JP (occurrence: JP)
  Receive Date: 20210401
  Receipt Date: 20210401
  Transmission Date: 20210717
  Serious: Yes (Death)
  Sender: FDA-Public Use
  Company Number: NVSJ2021JP004357

PATIENT
  Sex: Female

DRUGS (2)
  1. ADRIACIN [Concomitant]
     Active Substance: DOXORUBICIN HYDROCHLORIDE
     Indication: PRODUCT USED FOR UNKNOWN INDICATION
     Dosage: UNK
     Route: 065
  2. ENTRESTO [Suspect]
     Active Substance: SACUBITRIL\VALSARTAN
     Indication: CARDIAC FAILURE CHRONIC
     Dosage: 50 MG, BID
     Route: 048
     Dates: start: 20210308

REACTIONS (6)
  - Concomitant disease aggravated [Fatal]
  - Capillary leak syndrome [Fatal]
  - Oedema mucosal [Fatal]
  - General physical health deterioration [Fatal]
  - Leukaemia [Fatal]
  - Flushing [Fatal]

NARRATIVE: CASE EVENT DATE: 20210311
